FAERS Safety Report 5030938-6 (Version None)
Quarter: 2006Q2

REPORT INFORMATION
  Report Type: 
  Country: None (occurrence: None)
  Receive Date: 20060504
  Receipt Date: 20060207
  Transmission Date: 20061013
  Serious: No
  Sender: FDA-Public Use
  Company Number: 200610708BWH

PATIENT
  Age: 70 Year
  Sex: Male

DRUGS (4)
  1. LEVITRA [Suspect]
     Indication: ERECTILE DYSFUNCTION
     Dosage: 20 MG, TOTAL DAILY, ORAL
     Route: 048
     Dates: start: 20051112, end: 20051220
  2. DIOVAN [Concomitant]
  3. ZETIA [Concomitant]
  4. NEXIUM [Concomitant]

REACTIONS (2)
  - FLUSHING [None]
  - HEADACHE [None]
